FAERS Safety Report 4697737-6 (Version None)
Quarter: 2005Q2

REPORT INFORMATION
  Report Type: 
  Country: None (occurrence: None)
  Receive Date: 20050119
  Receipt Date: 20050119
  Transmission Date: 20051028
  Serious: Yes (Other)
  Sender: FDA-Public Use
  Company Number: None

PATIENT
  Age: 45 Year
  Sex: Female

DRUGS (2)
  1. DILANTIN [Suspect]
     Indication: CONVULSION
     Dosage: 100MG 1 Q AM
  2. TEGRETOL [Suspect]
     Dosage: 200 G - 2 TID

REACTIONS (2)
  - CONDITION AGGRAVATED [None]
  - CONVULSION [None]
